FAERS Safety Report 12901540 (Version 2)
Quarter: 2016Q4

REPORT INFORMATION
  Report Type: Spontaneous
  Country: GB (occurrence: GB)
  Receive Date: 20161102
  Receipt Date: 20161107
  Transmission Date: 20170207
  Serious: Yes (Hospitalization, Other)
  Sender: FDA-Public Use
  Company Number: GB-BRISTOL-MYERS SQUIBB COMPANY-BMS-2016-090311

PATIENT
  Age: 71 Year
  Sex: Female

DRUGS (1)
  1. OPDIVO [Suspect]
     Active Substance: NIVOLUMAB
     Indication: NON-SMALL CELL LUNG CANCER
     Dosage: 10 MG/ML, UNK
     Route: 042
     Dates: start: 20160516, end: 20161017

REACTIONS (7)
  - Malignant neoplasm progression [Unknown]
  - Stridor [Unknown]
  - Off label use [Unknown]
  - Dyspnoea [Unknown]
  - General physical health deterioration [Unknown]
  - Pneumothorax [Unknown]
  - Pleural effusion [Unknown]

NARRATIVE: CASE EVENT DATE: 20161024
